FAERS Safety Report 24651834 (Version 2)
Quarter: 2025Q1

REPORT INFORMATION
  Report Type: Report from Study
  Country: FR (occurrence: FR)
  Receive Date: 20241122
  Receipt Date: 20250123
  Transmission Date: 20250409
  Serious: Yes (Hospitalization)
  Sender: ABBVIE
  Company Number: FR-ABBVIE-6008496

PATIENT
  Age: 76 Year
  Sex: Male

DRUGS (1)
  1. FOSCARBIDOPA\FOSLEVODOPA [Suspect]
     Active Substance: FOSCARBIDOPA\FOSLEVODOPA
     Indication: Parkinson^s disease
     Route: 058
     Dates: start: 20241108

REACTIONS (4)
  - Puncture site reaction [Unknown]
  - Puncture site pain [Unknown]
  - Puncture site inflammation [Unknown]
  - Catheter site hypersensitivity [Unknown]

NARRATIVE: CASE EVENT DATE: 20240101
